FAERS Safety Report 5996000-0 (Version None)
Quarter: 2008Q4

REPORT INFORMATION
  Report Type: 
  Country: None (occurrence: None)
  Receive Date: 20081212
  Receipt Date: 20081007
  Transmission Date: 20090506
  Serious: No
  Sender: FDA-Public Use
  Company Number: US-ABBOTT-08P-163-0480211-00

PATIENT
  Sex: Female

DRUGS (1)
  1. HUMIRA [Suspect]
     Indication: PSORIASIS
     Route: 058
     Dates: start: 20080601, end: 20081001

REACTIONS (4)
  - INJECTION SITE NODULE [None]
  - INJECTION SITE RASH [None]
  - OEDEMA PERIPHERAL [None]
  - PAIN IN EXTREMITY [None]
